FAERS Safety Report 23014248 (Version 2)
Quarter: 2023Q4

REPORT INFORMATION
  Report Type: Report from Study
  Country: US (occurrence: US)
  Receive Date: 20231002
  Receipt Date: 20231127
  Transmission Date: 20240110
  Serious: Yes (Hospitalization, Other)
  Sender: FDA-Public Use
  Company Number: US-CATALYST PHARMACEUTICALS, INC-US-CATA-23-00552

PATIENT
  Sex: Female

DRUGS (2)
  1. FIRDAPSE [Suspect]
     Active Substance: AMIFAMPRIDINE PHOSPHATE
     Indication: Myasthenic syndrome
     Dosage: 80 MG A DAY
     Route: 048
     Dates: start: 20190701
  2. LYRICA [Concomitant]
     Active Substance: PREGABALIN
     Indication: Product used for unknown indication
     Dosage: ^UNABLE TO GET A REFILL UNTIL THE END OF NOVEMBER^
     Route: 065

REACTIONS (20)
  - Road traffic accident [Unknown]
  - Cerebrovascular accident [Unknown]
  - Myocardial infarction [Unknown]
  - Neuropathy peripheral [Unknown]
  - Disease progression [Unknown]
  - Hospitalisation [Unknown]
  - Panic attack [Not Recovered/Not Resolved]
  - Condition aggravated [Not Recovered/Not Resolved]
  - Movement disorder [Unknown]
  - Head injury [Unknown]
  - Limb injury [Unknown]
  - Neck injury [Unknown]
  - Joint injury [Unknown]
  - Anxiety [Unknown]
  - Migraine [Unknown]
  - Partner stress [Unknown]
  - Immunodeficiency [Unknown]
  - Homeless [Not Recovered/Not Resolved]
  - Product dose omission issue [Unknown]
  - Product supply issue [Unknown]

NARRATIVE: CASE EVENT DATE: 20230101
